FAERS Safety Report 7611654-0 (Version None)
Quarter: 2011Q3

REPORT INFORMATION
  Report Type: 
  Country: None (occurrence: None)
  Receive Date: 20110715
  Receipt Date: 20110711
  Transmission Date: 20111222
  Serious: Yes (Hospitalization)
  Sender: FDA-Public Use
  Company Number: US-B.I. PHARMACEUTICALS,INC./RIDGEFIELD-2011-BP-06889BP

PATIENT
  Sex: Male
  Weight: 92.07 kg

DRUGS (10)
  1. COREG [Concomitant]
  2. KLOR-CON [Concomitant]
  3. MULTI-VITAMIN [Concomitant]
  4. VITAMIN D [Concomitant]
  5. ROPINIROLE HYDROCHLORIDE [Concomitant]
  6. TORSEMIDE [Concomitant]
  7. PRADAXA [Suspect]
     Indication: ATRIAL FIBRILLATION
     Dosage: 300 MG
     Dates: start: 20110125, end: 20110307
  8. COUMADIN [Concomitant]
  9. LIPITOR [Concomitant]
  10. ASPIRIN [Concomitant]

REACTIONS (5)
  - PAIN IN EXTREMITY [None]
  - OEDEMA PERIPHERAL [None]
  - ARTHRALGIA [None]
  - INFECTION [None]
  - RASH [None]
